FAERS Safety Report 20362381 (Version 1)
Quarter: 2022Q1

REPORT INFORMATION
  Report Type: Other
  Country: CA (occurrence: CA)
  Receive Date: 20220121
  Receipt Date: 20220121
  Transmission Date: 20220424
  Serious: Yes (Other)
  Sender: FDA-Public Use
  Company Number: CA-PFIZER INC-202200077772

PATIENT

DRUGS (1)
  1. PHENYTOIN [Suspect]
     Active Substance: PHENYTOIN
     Indication: Nausea
     Dosage: UNK
     Route: 065

REACTIONS (2)
  - Pancreatitis acute [Unknown]
  - Off label use [Unknown]
